FAERS Safety Report 5858562-3 (Version None)
Quarter: 2008Q3

REPORT INFORMATION
  Report Type: 
  Country: None (occurrence: None)
  Receive Date: 20080826
  Receipt Date: 20080814
  Transmission Date: 20090109
  Serious: Yes (Hospitalization, Other)
  Sender: FDA-Public Use
  Company Number: DK-PFIZER INC-2008068480

PATIENT
  Sex: Female

DRUGS (6)
  1. LYRICA [Suspect]
     Indication: ANXIETY
     Dosage: DAILY DOSE:75MG
     Dates: start: 20080219, end: 20080310
  2. HEXALID [Concomitant]
  3. SEROQUEL [Concomitant]
  4. CITALOPRAM HYDROBROMIDE [Concomitant]
  5. ANTABUSE [Concomitant]
  6. CAMPRAL [Concomitant]

REACTIONS (3)
  - ABDOMINAL NEOPLASM [None]
  - PANCREATITIS [None]
  - VULVAL CANCER [None]
